FAERS Safety Report 11339458 (Version 1)
Quarter: 2015Q3

REPORT INFORMATION
  Report Type: Spontaneous
  Country: JP (occurrence: JP)
  Receive Date: 20150805
  Receipt Date: 20150805
  Transmission Date: 20151125
  Serious: Yes (Life-Threatening, Hospitalization, Other)
  Sender: FDA-Public Use
  Company Number: JP-ROCHE-1611489

PATIENT
  Age: 17 Year
  Sex: Female
  Weight: 45 kg

DRUGS (7)
  1. CELLCEPT [Suspect]
     Active Substance: MYCOPHENOLATE MOFETIL\MYCOPHENOLATE MOFETIL HYDROCHLORIDE
     Indication: LUPUS NEPHRITIS
     Dosage: DOSE INCREASED?OTHER PURPOSES: SYSTEMIC LUPUS ERYTHEMATOSUS
     Route: 048
     Dates: start: 20150629, end: 20150706
  2. CELLCEPT [Suspect]
     Active Substance: MYCOPHENOLATE MOFETIL\MYCOPHENOLATE MOFETIL HYDROCHLORIDE
     Dosage: DOSE REDUCED?OTHER PURPOSES: SYSTEMIC LUPUS ERYTHEMATOSUS
     Route: 048
     Dates: start: 20150708, end: 20150710
  3. PREDONINE [Concomitant]
     Active Substance: PREDNISOLONE\PREDNISOLONE ACETATE\PREDNISOLONE SODIUM SUCCINATE
     Indication: LUPUS NEPHRITIS
     Dosage: OTHER PURPOSES: SYSTEMIC LUPUS ERYTHEMATOSUS
     Route: 048
     Dates: start: 20150629
  4. NEORAL [Suspect]
     Active Substance: CYCLOSPORINE
     Indication: LUPUS NEPHRITIS
     Dosage: OTHER PURPOSES: SYSTEMIC LUPUS ERYTHEMATOSUS
     Route: 048
     Dates: start: 20110802, end: 20150706
  5. LONGES [Concomitant]
     Active Substance: LISINOPRIL
     Indication: LUPUS NEPHRITIS
     Dosage: OTHER PURPOSES: SYSTEMIC LUPUS ERYTHEMATOSUS
     Route: 048
     Dates: start: 20110713, end: 20150706
  6. CELLCEPT [Suspect]
     Active Substance: MYCOPHENOLATE MOFETIL\MYCOPHENOLATE MOFETIL HYDROCHLORIDE
     Dosage: DOSE REDUCED?OTHER PURPOSES: INCREASES IT FOR THE SYSTEMIC LUPUS ERYTHEMATOSUS
     Route: 048
     Dates: start: 20150707, end: 20150707
  7. DIPYRIDAMOLE. [Concomitant]
     Active Substance: DIPYRIDAMOLE
     Indication: LUPUS NEPHRITIS
     Dosage: OTHER PURPOSES: SYSTEMIC LUPUS ERYTHEMATOSUS
     Route: 048
     Dates: start: 20110713, end: 20150706

REACTIONS (15)
  - Posterior reversible encephalopathy syndrome [Recovered/Resolved]
  - Alopecia [Not Recovered/Not Resolved]
  - Off label use [Unknown]
  - Hyperuricaemia [Unknown]
  - Blood lactate dehydrogenase increased [Not Recovered/Not Resolved]
  - Diarrhoea [Not Recovered/Not Resolved]
  - Gastrointestinal haemorrhage [Not Recovered/Not Resolved]
  - Acute kidney injury [Recovered/Resolved]
  - Aspartate aminotransferase increased [Not Recovered/Not Resolved]
  - Blood creatine phosphokinase increased [Not Recovered/Not Resolved]
  - Febrile neutropenia [Recovered/Resolved]
  - Pancytopenia [Recovered/Resolved]
  - Central nervous system lupus [Unknown]
  - Ileus paralytic [Not Recovered/Not Resolved]
  - Alanine aminotransferase increased [Not Recovered/Not Resolved]

NARRATIVE: CASE EVENT DATE: 201507
